FAERS Safety Report 20665514 (Version 3)
Quarter: 2022Q4

REPORT INFORMATION
  Report Type: Other
  Country: CA (occurrence: None)
  Receive Date: 20220402
  Receipt Date: 20221019
  Transmission Date: 20230113
  Serious: No
  Sender: FDA-Public Use
  Company Number: CA-ROCHE-3059458

PATIENT
  Age: 28 Year
  Sex: Male

DRUGS (2)
  1. OCREVUS [Suspect]
     Active Substance: OCRELIZUMAB
     Indication: Relapsing-remitting multiple sclerosis
     Dosage: 1ST INFUSION OF 600MG AFTER TWO LOADING DOSES?300 MG AT DAY 0 AND 14, THEN 600 MG EVERY 6 MONTH?LAST
     Route: 042
     Dates: start: 20210903
  2. BACLOFEN [Suspect]
     Active Substance: BACLOFEN
     Indication: Product used for unknown indication
     Route: 065

REACTIONS (4)
  - Muscular weakness [Unknown]
  - Vision blurred [Unknown]
  - Headache [Unknown]
  - COVID-19 [Recovering/Resolving]

NARRATIVE: CASE EVENT DATE: 20211101
